FAERS Safety Report 5679186-7 (Version None)
Quarter: 2008Q1

REPORT INFORMATION
  Report Type: 
  Country: None (occurrence: None)
  Receive Date: 20080325
  Receipt Date: 20080314
  Transmission Date: 20080703
  Serious: Yes (Other)
  Sender: FDA-Public Use
  Company Number: PR-BAYER-PR-2007-032194

PATIENT
  Age: 64 Year
  Sex: Female
  Weight: 75 kg

DRUGS (10)
  1. MAGNEVIST [Suspect]
     Indication: ARTERIOGRAM CAROTID
     Dosage: UNIT DOSE: 30 ML
     Route: 042
     Dates: start: 20070825, end: 20070825
  2. SYNTHROID [Concomitant]
  3. TOPROL-XL [Concomitant]
  4. HYZAAR [Concomitant]
  5. EVISTA [Concomitant]
  6. ALLEGRA [Concomitant]
  7. RELAFEN [Concomitant]
  8. LIBRAX [Concomitant]
  9. PREVACID [Concomitant]
  10. PREMARIN [Concomitant]

REACTIONS (3)
  - CYANOSIS [None]
  - INJECTION SITE INFLAMMATION [None]
  - PHLEBITIS SUPERFICIAL [None]
